FAERS Safety Report 7913357-1 (Version None)
Quarter: 2011Q4

REPORT INFORMATION
  Report Type: 
  Country: None (occurrence: None)
  Receive Date: 20111114
  Receipt Date: 20111101
  Transmission Date: 20120403
  Serious: Yes (Other)
  Sender: FDA-Public Use
  Company Number: US-ELI_LILLY_AND_COMPANY-US201109000191

PATIENT
  Sex: Female
  Weight: 57.143 kg

DRUGS (4)
  1. FORTEO [Suspect]
     Dosage: 20 UG, QD
     Route: 065
     Dates: start: 20110701, end: 20110727
  2. FORTEO [Suspect]
     Dosage: 20 UG, QD
     Route: 065
  3. THYROID TAB [Concomitant]
  4. FORTEO [Suspect]
     Indication: OSTEOPOROSIS
     Dosage: 20 UG, QD
     Route: 065
     Dates: start: 20110601

REACTIONS (2)
  - NEPHROLITHIASIS [None]
  - RENAL NEOPLASM [None]
